FAERS Safety Report 24635311 (Version 8)
Quarter: 2025Q3

REPORT INFORMATION
  Report Type: Spontaneous
  Country: CA (occurrence: CA)
  Receive Date: 20241119
  Receipt Date: 20250905
  Transmission Date: 20251021
  Serious: Yes (Death, Life-Threatening, Hospitalization, Disabling, Congenital Anomaly, Other)
  Sender: Haleon PLC
  Company Number: CA-002147023-NVSC2024CA101273

PATIENT
  Age: 40 Year
  Sex: Female
  Weight: 96 kg

DRUGS (729)
  1. DICLOFENAC [Suspect]
     Active Substance: DICLOFENAC
     Indication: Product used for unknown indication
  2. HAIR KERATIN AMINO ACIDS GOLD COMPLEX [Suspect]
     Active Substance: HAIR KERATIN AMINO ACIDS GOLD COMPLEX
     Indication: Product used for unknown indication
  3. HAIR KERATIN AMINO ACIDS GOLD COMPLEX [Suspect]
     Active Substance: HAIR KERATIN AMINO ACIDS GOLD COMPLEX
  4. ERGOCALCIFEROL [Suspect]
     Active Substance: ERGOCALCIFEROL
     Indication: Rheumatoid arthritis
  5. GOLIMUMAB [Suspect]
     Active Substance: GOLIMUMAB
     Indication: Rheumatoid arthritis
  6. GOLIMUMAB [Suspect]
     Active Substance: GOLIMUMAB
  7. NAPROXEN [Suspect]
     Active Substance: NAPROXEN
     Indication: Product used for unknown indication
  8. NUCALA [Suspect]
     Active Substance: MEPOLIZUMAB
     Indication: Product used for unknown indication
  9. NUCALA [Suspect]
     Active Substance: MEPOLIZUMAB
  10. OXYCODONE TEREPHTHALATE [Suspect]
     Active Substance: OXYCODONE TEREPHTHALATE
     Indication: Product used for unknown indication
  11. RANITIDINE [Suspect]
     Active Substance: RANITIDINE
     Indication: Product used for unknown indication
  12. CETIRIZINE HYDROCHLORIDE [Suspect]
     Active Substance: CETIRIZINE HYDROCHLORIDE
     Indication: Rheumatoid arthritis
     Route: 048
  13. CETIRIZINE HYDROCHLORIDE [Suspect]
     Active Substance: CETIRIZINE HYDROCHLORIDE
     Route: 048
  14. CETIRIZINE HYDROCHLORIDE [Suspect]
     Active Substance: CETIRIZINE HYDROCHLORIDE
     Route: 048
  15. CETIRIZINE HYDROCHLORIDE [Suspect]
     Active Substance: CETIRIZINE HYDROCHLORIDE
     Route: 048
  16. CETIRIZINE HYDROCHLORIDE [Suspect]
     Active Substance: CETIRIZINE HYDROCHLORIDE
     Route: 048
  17. CETIRIZINE HYDROCHLORIDE [Suspect]
     Active Substance: CETIRIZINE HYDROCHLORIDE
     Route: 048
  18. CETIRIZINE HYDROCHLORIDE [Suspect]
     Active Substance: CETIRIZINE HYDROCHLORIDE
     Route: 048
  19. CETIRIZINE HYDROCHLORIDE [Suspect]
     Active Substance: CETIRIZINE HYDROCHLORIDE
     Route: 048
  20. CETIRIZINE HYDROCHLORIDE [Suspect]
     Active Substance: CETIRIZINE HYDROCHLORIDE
     Route: 048
  21. CETIRIZINE HYDROCHLORIDE [Suspect]
     Active Substance: CETIRIZINE HYDROCHLORIDE
     Route: 058
  22. CETIRIZINE HYDROCHLORIDE [Suspect]
     Active Substance: CETIRIZINE HYDROCHLORIDE
     Route: 042
  23. CETIRIZINE HYDROCHLORIDE [Suspect]
     Active Substance: CETIRIZINE HYDROCHLORIDE
     Dosage: 500 MG, QD (POWDER FOR SOLUTION)
     Route: 042
  24. CETIRIZINE HYDROCHLORIDE [Suspect]
     Active Substance: CETIRIZINE HYDROCHLORIDE
     Route: 042
  25. CETIRIZINE HYDROCHLORIDE [Suspect]
     Active Substance: CETIRIZINE HYDROCHLORIDE
     Route: 042
  26. CETIRIZINE HYDROCHLORIDE [Suspect]
     Active Substance: CETIRIZINE HYDROCHLORIDE
     Route: 042
  27. CETIRIZINE HYDROCHLORIDE [Suspect]
     Active Substance: CETIRIZINE HYDROCHLORIDE
     Route: 058
  28. CETIRIZINE HYDROCHLORIDE [Suspect]
     Active Substance: CETIRIZINE HYDROCHLORIDE
  29. CETIRIZINE HYDROCHLORIDE [Suspect]
     Active Substance: CETIRIZINE HYDROCHLORIDE
     Route: 042
  30. CETIRIZINE HYDROCHLORIDE [Suspect]
     Active Substance: CETIRIZINE HYDROCHLORIDE
     Route: 042
  31. CETIRIZINE HYDROCHLORIDE [Suspect]
     Active Substance: CETIRIZINE HYDROCHLORIDE
     Route: 042
  32. CETIRIZINE HYDROCHLORIDE [Suspect]
     Active Substance: CETIRIZINE HYDROCHLORIDE
  33. CETIRIZINE HYDROCHLORIDE [Suspect]
     Active Substance: CETIRIZINE HYDROCHLORIDE
     Dosage: 2000 MG, QD (POWDER FOR SOLUTION), INTRAVENOUS BOLUS
  34. CETIRIZINE HYDROCHLORIDE [Suspect]
     Active Substance: CETIRIZINE HYDROCHLORIDE
     Route: 042
  35. CETIRIZINE HYDROCHLORIDE [Suspect]
     Active Substance: CETIRIZINE HYDROCHLORIDE
  36. CETIRIZINE HYDROCHLORIDE [Suspect]
     Active Substance: CETIRIZINE HYDROCHLORIDE
     Dosage: 2000 MG, QD (POWDER FOR SOLUTION)
     Route: 042
  37. CETIRIZINE HYDROCHLORIDE [Suspect]
     Active Substance: CETIRIZINE HYDROCHLORIDE
     Dosage: 2000 MG, QD (POWDER FOR SOLUTION) INTRAVENOUS BOLUS
  38. CETIRIZINE HYDROCHLORIDE [Suspect]
     Active Substance: CETIRIZINE HYDROCHLORIDE
     Route: 042
  39. CETIRIZINE HYDROCHLORIDE [Suspect]
     Active Substance: CETIRIZINE HYDROCHLORIDE
     Route: 042
  40. CETIRIZINE HYDROCHLORIDE [Suspect]
     Active Substance: CETIRIZINE HYDROCHLORIDE
     Dosage: 2000 MG, QD (POWDER FOR SOLUTION)
     Route: 042
  41. CETIRIZINE HYDROCHLORIDE [Suspect]
     Active Substance: CETIRIZINE HYDROCHLORIDE
     Route: 042
  42. CETIRIZINE HYDROCHLORIDE [Suspect]
     Active Substance: CETIRIZINE HYDROCHLORIDE
     Route: 042
  43. CETIRIZINE HYDROCHLORIDE [Suspect]
     Active Substance: CETIRIZINE HYDROCHLORIDE
  44. CETIRIZINE HYDROCHLORIDE [Suspect]
     Active Substance: CETIRIZINE HYDROCHLORIDE
     Route: 043
  45. CETIRIZINE HYDROCHLORIDE [Suspect]
     Active Substance: CETIRIZINE HYDROCHLORIDE
  46. CETIRIZINE HYDROCHLORIDE [Suspect]
     Active Substance: CETIRIZINE HYDROCHLORIDE
     Route: 042
  47. CETIRIZINE HYDROCHLORIDE [Suspect]
     Active Substance: CETIRIZINE HYDROCHLORIDE
     Route: 042
  48. CETIRIZINE HYDROCHLORIDE [Suspect]
     Active Substance: CETIRIZINE HYDROCHLORIDE
     Route: 042
  49. CETIRIZINE HYDROCHLORIDE [Suspect]
     Active Substance: CETIRIZINE HYDROCHLORIDE
     Route: 042
  50. CETIRIZINE HYDROCHLORIDE [Suspect]
     Active Substance: CETIRIZINE HYDROCHLORIDE
     Route: 043
  51. CETIRIZINE HYDROCHLORIDE [Suspect]
     Active Substance: CETIRIZINE HYDROCHLORIDE
     Route: 042
  52. CETIRIZINE HYDROCHLORIDE [Suspect]
     Active Substance: CETIRIZINE HYDROCHLORIDE
     Dosage: 500 MG, QD (POWDER FOR SOLUTION)
     Route: 042
  53. CETIRIZINE HYDROCHLORIDE [Suspect]
     Active Substance: CETIRIZINE HYDROCHLORIDE
     Route: 042
  54. CETIRIZINE HYDROCHLORIDE [Suspect]
     Active Substance: CETIRIZINE HYDROCHLORIDE
     Dosage: 500 MG, QD (POWDER FOR SOLUTION)
     Route: 042
  55. CETIRIZINE HYDROCHLORIDE [Suspect]
     Active Substance: CETIRIZINE HYDROCHLORIDE
     Route: 058
  56. CETIRIZINE HYDROCHLORIDE [Suspect]
     Active Substance: CETIRIZINE HYDROCHLORIDE
     Route: 042
  57. CETIRIZINE HYDROCHLORIDE [Suspect]
     Active Substance: CETIRIZINE HYDROCHLORIDE
     Route: 042
  58. BERINERT [Suspect]
     Active Substance: HUMAN C1-ESTERASE INHIBITOR
     Indication: Product used for unknown indication
  59. ACTEMRA [Suspect]
     Active Substance: TOCILIZUMAB
     Indication: Rheumatoid arthritis
     Route: 042
  60. ACTEMRA [Suspect]
     Active Substance: TOCILIZUMAB
  61. ACTEMRA [Suspect]
     Active Substance: TOCILIZUMAB
  62. ACTEMRA [Suspect]
     Active Substance: TOCILIZUMAB
  63. ACTEMRA [Suspect]
     Active Substance: TOCILIZUMAB
  64. ACTEMRA [Suspect]
     Active Substance: TOCILIZUMAB
  65. ACTEMRA [Suspect]
     Active Substance: TOCILIZUMAB
     Route: 058
  66. ACTEMRA [Suspect]
     Active Substance: TOCILIZUMAB
  67. ACTEMRA [Suspect]
     Active Substance: TOCILIZUMAB
  68. ACTEMRA [Suspect]
     Active Substance: TOCILIZUMAB
     Route: 042
  69. ACTEMRA [Suspect]
     Active Substance: TOCILIZUMAB
  70. ACTEMRA [Suspect]
     Active Substance: TOCILIZUMAB
  71. ACTEMRA [Suspect]
     Active Substance: TOCILIZUMAB
     Route: 058
  72. ACTEMRA [Suspect]
     Active Substance: TOCILIZUMAB
     Route: 058
  73. ACTEMRA [Suspect]
     Active Substance: TOCILIZUMAB
     Dosage: 25 MG, QW
     Route: 058
  74. ACTEMRA [Suspect]
     Active Substance: TOCILIZUMAB
     Route: 042
  75. ACTEMRA [Suspect]
     Active Substance: TOCILIZUMAB
  76. ACTEMRA [Suspect]
     Active Substance: TOCILIZUMAB
     Route: 058
  77. ACTEMRA [Suspect]
     Active Substance: TOCILIZUMAB
     Route: 042
  78. ACTEMRA [Suspect]
     Active Substance: TOCILIZUMAB
  79. BOTULINUM TOXIN TYPE A [Suspect]
     Active Substance: BOTULINUM TOXIN TYPE A
     Indication: Product used for unknown indication
  80. ALENDRONATE [Suspect]
     Active Substance: ALENDRONATE SODIUM
     Indication: Product used for unknown indication
  81. LEFLUNOMIDE [Suspect]
     Active Substance: LEFLUNOMIDE
     Indication: Rheumatoid arthritis
     Route: 048
  82. LEFLUNOMIDE [Suspect]
     Active Substance: LEFLUNOMIDE
     Route: 048
  83. LEFLUNOMIDE [Suspect]
     Active Substance: LEFLUNOMIDE
     Route: 048
  84. LEFLUNOMIDE [Suspect]
     Active Substance: LEFLUNOMIDE
     Route: 048
  85. LEFLUNOMIDE [Suspect]
     Active Substance: LEFLUNOMIDE
     Dosage: Q24H;
  86. LEFLUNOMIDE [Suspect]
     Active Substance: LEFLUNOMIDE
     Dosage: 20 MG
     Route: 048
  87. LEFLUNOMIDE [Suspect]
     Active Substance: LEFLUNOMIDE
     Dosage: 20 MG, Q24H
  88. LEFLUNOMIDE [Suspect]
     Active Substance: LEFLUNOMIDE
  89. LEFLUNOMIDE [Suspect]
     Active Substance: LEFLUNOMIDE
     Route: 048
  90. ERELZI [Suspect]
     Active Substance: ETANERCEPT-SZZS
     Indication: Rheumatoid arthritis
  91. ERELZI [Suspect]
     Active Substance: ETANERCEPT-SZZS
     Indication: Product used for unknown indication
  92. ERELZI [Suspect]
     Active Substance: ETANERCEPT-SZZS
  93. ERELZI [Suspect]
     Active Substance: ETANERCEPT-SZZS
  94. ERELZI [Suspect]
     Active Substance: ETANERCEPT-SZZS
  95. ERELZI [Suspect]
     Active Substance: ETANERCEPT-SZZS
  96. ERELZI [Suspect]
     Active Substance: ETANERCEPT-SZZS
     Route: 058
  97. TRAMADOL HYDROCHLORIDE [Suspect]
     Active Substance: TRAMADOL HYDROCHLORIDE
     Indication: Product used for unknown indication
     Dosage: 20 MG, QD
  98. ARAVA [Suspect]
     Active Substance: LEFLUNOMIDE
     Indication: Rheumatoid arthritis
     Dosage: 20 MG, QD
     Route: 048
  99. ARAVA [Suspect]
     Active Substance: LEFLUNOMIDE
     Route: 048
  100. ARAVA [Suspect]
     Active Substance: LEFLUNOMIDE
  101. ARAVA [Suspect]
     Active Substance: LEFLUNOMIDE
  102. ARAVA [Suspect]
     Active Substance: LEFLUNOMIDE
     Route: 048
  103. ARAVA [Suspect]
     Active Substance: LEFLUNOMIDE
     Route: 048
  104. ARAVA [Suspect]
     Active Substance: LEFLUNOMIDE
     Route: 050
  105. ARAVA [Suspect]
     Active Substance: LEFLUNOMIDE
     Dosage: 1.0 MG, QD
     Route: 048
  106. ARAVA [Suspect]
     Active Substance: LEFLUNOMIDE
     Route: 048
  107. ARAVA [Suspect]
     Active Substance: LEFLUNOMIDE
     Dosage: 20 MG, QD
     Route: 048
  108. ARAVA [Suspect]
     Active Substance: LEFLUNOMIDE
     Route: 048
  109. AZATHIOPRINE [Suspect]
     Active Substance: AZATHIOPRINE
     Indication: Rheumatoid arthritis
  110. AZATHIOPRINE [Suspect]
     Active Substance: AZATHIOPRINE
     Indication: Product used for unknown indication
  111. RITUXIMAB [Suspect]
     Active Substance: RITUXIMAB
     Indication: Rheumatoid arthritis
     Dosage: 1 G, Q12H
     Route: 042
  112. RITUXIMAB [Suspect]
     Active Substance: RITUXIMAB
     Dosage: 1000 MG, INTRAVENOUS BOLUS
  113. RITUXIMAB [Suspect]
     Active Substance: RITUXIMAB
     Route: 058
  114. RITUXIMAB [Suspect]
     Active Substance: RITUXIMAB
     Route: 058
  115. RITUXIMAB [Suspect]
     Active Substance: RITUXIMAB
     Dosage: 1 G INTRAVENOUS BOLUS
  116. RITUXIMAB [Suspect]
     Active Substance: RITUXIMAB
  117. RITUXIMAB [Suspect]
     Active Substance: RITUXIMAB
  118. RITUXIMAB [Suspect]
     Active Substance: RITUXIMAB
     Route: 043
  119. RITUXIMAB [Suspect]
     Active Substance: RITUXIMAB
  120. RITUXIMAB [Suspect]
     Active Substance: RITUXIMAB
     Route: 058
  121. RITUXIMAB [Suspect]
     Active Substance: RITUXIMAB
  122. RITUXIMAB [Suspect]
     Active Substance: RITUXIMAB
     Route: 058
  123. RITUXIMAB [Suspect]
     Active Substance: RITUXIMAB
  124. RITUXIMAB [Suspect]
     Active Substance: RITUXIMAB
     Route: 043
  125. RITUXIMAB [Suspect]
     Active Substance: RITUXIMAB
     Dosage: 1000 MG, INTRAVENOUS BOLUS
  126. RITUXIMAB [Suspect]
     Active Substance: RITUXIMAB
     Dosage: 1000 MG (1 EVERY 5 DAYS)
     Route: 042
  127. RITUXIMAB [Suspect]
     Active Substance: RITUXIMAB
     Dosage: 2000 MG, QD INTRAVENOUS BOLUS
  128. RITUXIMAB [Suspect]
     Active Substance: RITUXIMAB
  129. RITUXIMAB [Suspect]
     Active Substance: RITUXIMAB
     Route: 058
  130. RITUXIMAB [Suspect]
     Active Substance: RITUXIMAB
     Route: 058
  131. RITUXIMAB [Suspect]
     Active Substance: RITUXIMAB
     Route: 058
  132. RITUXIMAB [Suspect]
     Active Substance: RITUXIMAB
  133. RITUXIMAB [Suspect]
     Active Substance: RITUXIMAB
     Route: 043
  134. RITUXIMAB [Suspect]
     Active Substance: RITUXIMAB
  135. RITUXIMAB [Suspect]
     Active Substance: RITUXIMAB
     Route: 043
  136. RITUXIMAB [Suspect]
     Active Substance: RITUXIMAB
     Dosage: 1 G, INTRAVENOUS BOLUS
  137. RITUXIMAB [Suspect]
     Active Substance: RITUXIMAB
     Dosage: 2 G, QD,INTRAVENOUS BOLUS
  138. RITUXIMAB [Suspect]
     Active Substance: RITUXIMAB
     Dosage: 1 G, Q12H
     Route: 042
  139. RITUXIMAB [Suspect]
     Active Substance: RITUXIMAB
     Dosage: 2000 MG, QD,INTRAVENOUS BOLUS
  140. RITUXIMAB [Suspect]
     Active Substance: RITUXIMAB
  141. RITUXIMAB [Suspect]
     Active Substance: RITUXIMAB
     Dosage: 1 G, BID INTRAVENOUS BOLUS
  142. RITUXIMAB [Suspect]
     Active Substance: RITUXIMAB
     Dosage: 2 G, QD INTRAVENOUS BOLUS
  143. RITUXIMAB [Suspect]
     Active Substance: RITUXIMAB
     Dosage: 2000 MG, QD INTRAVENOUS BOLUS
  144. RITUXIMAB [Suspect]
     Active Substance: RITUXIMAB
     Dosage: 2000 MG, QD INTRAVENOUS BOLUS
  145. RITUXIMAB [Suspect]
     Active Substance: RITUXIMAB
  146. RITUXIMAB [Suspect]
     Active Substance: RITUXIMAB
     Dosage: 1 G, Q12H
  147. RITUXIMAB [Suspect]
     Active Substance: RITUXIMAB
     Dosage: 2 MG, QD INTRAVENOUS BOLUS
  148. RITUXIMAB [Suspect]
     Active Substance: RITUXIMAB
     Route: 058
  149. RITUXIMAB [Suspect]
     Active Substance: RITUXIMAB
     Route: 043
  150. RITUXIMAB [Suspect]
     Active Substance: RITUXIMAB
     Dosage: 1 G
  151. RITUXIMAB [Suspect]
     Active Substance: RITUXIMAB
     Route: 043
  152. RITUXIMAB [Suspect]
     Active Substance: RITUXIMAB
     Route: 058
  153. RITUXIMAB [Suspect]
     Active Substance: RITUXIMAB
     Route: 043
  154. RITUXIMAB [Suspect]
     Active Substance: RITUXIMAB
     Route: 043
  155. RITUXIMAB [Suspect]
     Active Substance: RITUXIMAB
     Dosage: 2000 MG, QD INTRAVENOUS BOLUS
  156. RITUXIMAB [Suspect]
     Active Substance: RITUXIMAB
     Route: 043
  157. RITUXIMAB [Suspect]
     Active Substance: RITUXIMAB
     Route: 058
  158. RITUXIMAB [Suspect]
     Active Substance: RITUXIMAB
     Route: 058
  159. RITUXIMAB [Suspect]
     Active Substance: RITUXIMAB
     Dosage: 1000 MG
     Route: 042
  160. RITUXIMAB [Suspect]
     Active Substance: RITUXIMAB
     Dosage: 2 G INTRAVENOUS BOLUS
  161. RITUXIMAB [Suspect]
     Active Substance: RITUXIMAB
     Route: 042
  162. RITUXIMAB [Suspect]
     Active Substance: RITUXIMAB
     Route: 043
  163. RITUXIMAB [Suspect]
     Active Substance: RITUXIMAB
  164. RITUXIMAB [Suspect]
     Active Substance: RITUXIMAB
     Dosage: 2000 MG, QD INTRAVENOUS BOLUS
  165. RITUXIMAB [Suspect]
     Active Substance: RITUXIMAB
     Dosage: 2 G INTRAVENOUS BOLUS
  166. RITUXIMAB [Suspect]
     Active Substance: RITUXIMAB
     Route: 058
  167. RITUXIMAB [Suspect]
     Active Substance: RITUXIMAB
  168. RITUXIMAB [Suspect]
     Active Substance: RITUXIMAB
     Dosage: 150 DAYS INTRAVENOUS BOLUS
  169. RITUXIMAB [Suspect]
     Active Substance: RITUXIMAB
     Dosage: 2 MG INTRAVENOUS BOLUS
  170. RITUXIMAB [Suspect]
     Active Substance: RITUXIMAB
     Dosage: 150 DAYS
     Route: 042
  171. RITUXIMAB [Suspect]
     Active Substance: RITUXIMAB
     Dosage: 150 DAYS INTRAVENOUS BOLUS
  172. RITUXIMAB [Suspect]
     Active Substance: RITUXIMAB
     Dosage: 2 G, QD
     Route: 042
  173. RITUXIMAB [Suspect]
     Active Substance: RITUXIMAB
     Route: 042
  174. RITUXIMAB [Suspect]
     Active Substance: RITUXIMAB
     Route: 042
  175. RITUXIMAB [Suspect]
     Active Substance: RITUXIMAB
     Dosage: 1000 MG, BID INTRAVENOUS BOLUS
  176. RITUXIMAB [Suspect]
     Active Substance: RITUXIMAB
     Route: 043
  177. RITUXIMAB [Suspect]
     Active Substance: RITUXIMAB
     Route: 058
  178. RITUXIMAB [Suspect]
     Active Substance: RITUXIMAB
  179. RITUXIMAB [Suspect]
     Active Substance: RITUXIMAB
     Dosage: 2 G, QD
     Route: 042
  180. RITUXIMAB [Suspect]
     Active Substance: RITUXIMAB
  181. RITUXIMAB [Suspect]
     Active Substance: RITUXIMAB
     Route: 043
  182. RITUXIMAB [Suspect]
     Active Substance: RITUXIMAB
     Route: 058
  183. RITUXIMAB [Suspect]
     Active Substance: RITUXIMAB
  184. RITUXIMAB [Suspect]
     Active Substance: RITUXIMAB
     Dosage: 2000 MG, QD INTRAVENOUS BOLUS
  185. RITUXIMAB [Suspect]
     Active Substance: RITUXIMAB
     Dosage: 1000 MG, BID
     Route: 042
  186. RITUXIMAB [Suspect]
     Active Substance: RITUXIMAB
  187. RITUXIMAB [Suspect]
     Active Substance: RITUXIMAB
     Dosage: 2000 MG, QD
     Route: 042
  188. RITUXIMAB [Suspect]
     Active Substance: RITUXIMAB
     Route: 058
  189. RITUXIMAB [Suspect]
     Active Substance: RITUXIMAB
     Route: 043
  190. RITUXIMAB [Suspect]
     Active Substance: RITUXIMAB
     Route: 042
  191. RITUXIMAB [Suspect]
     Active Substance: RITUXIMAB
  192. RITUXIMAB [Suspect]
     Active Substance: RITUXIMAB
     Route: 058
  193. RITUXIMAB [Suspect]
     Active Substance: RITUXIMAB
     Route: 043
  194. RITUXIMAB [Suspect]
     Active Substance: RITUXIMAB
     Route: 043
  195. RITUXIMAB [Suspect]
     Active Substance: RITUXIMAB
     Route: 058
  196. RITUXIMAB [Suspect]
     Active Substance: RITUXIMAB
     Route: 058
  197. RITUXIMAB [Suspect]
     Active Substance: RITUXIMAB
     Route: 043
  198. RITUXIMAB [Suspect]
     Active Substance: RITUXIMAB
     Route: 058
  199. RITUXIMAB [Suspect]
     Active Substance: RITUXIMAB
     Route: 058
  200. METHOTREXATE [Suspect]
     Active Substance: METHOTREXATE
     Indication: Rheumatoid arthritis
  201. METHOTREXATE [Suspect]
     Active Substance: METHOTREXATE
     Route: 048
  202. METHOTREXATE [Suspect]
     Active Substance: METHOTREXATE
  203. METHOTREXATE [Suspect]
     Active Substance: METHOTREXATE
     Route: 048
  204. METHOTREXATE [Suspect]
     Active Substance: METHOTREXATE
     Dosage: 20 MG, QD
     Route: 048
  205. METHOTREXATE [Suspect]
     Active Substance: METHOTREXATE
     Dosage: 25 MG, QW
     Route: 058
  206. METHOTREXATE [Suspect]
     Active Substance: METHOTREXATE
     Dosage: 20 MG, QW
  207. METHOTREXATE [Suspect]
     Active Substance: METHOTREXATE
     Dosage: 15 MG, QW
  208. METHOTREXATE [Suspect]
     Active Substance: METHOTREXATE
     Dosage: 25 MG, QW
  209. METHOTREXATE [Suspect]
     Active Substance: METHOTREXATE
  210. METHOTREXATE [Suspect]
     Active Substance: METHOTREXATE
  211. METHOTREXATE [Suspect]
     Active Substance: METHOTREXATE
     Route: 048
  212. METHOTREXATE [Suspect]
     Active Substance: METHOTREXATE
  213. METHOTREXATE [Suspect]
     Active Substance: METHOTREXATE
     Dosage: 25 MG, QW
  214. METHOTREXATE [Suspect]
     Active Substance: METHOTREXATE
     Dosage: 20 MG, QW
     Route: 058
  215. METHOTREXATE [Suspect]
     Active Substance: METHOTREXATE
     Dosage: 15 MG, QW
     Route: 058
  216. METHOTREXATE [Suspect]
     Active Substance: METHOTREXATE
     Dosage: 20 MG, QW
  217. METHOTREXATE [Suspect]
     Active Substance: METHOTREXATE
     Dosage: 25 MG, QD
     Route: 058
  218. METHOTREXATE [Suspect]
     Active Substance: METHOTREXATE
     Dosage: 15 MG, QW
  219. METHOTREXATE [Suspect]
     Active Substance: METHOTREXATE
     Dosage: 20 MG, QD
  220. METHOTREXATE [Suspect]
     Active Substance: METHOTREXATE
     Dosage: 20 MG, QD
     Route: 048
  221. METHOTREXATE [Suspect]
     Active Substance: METHOTREXATE
  222. METHOTREXATE [Suspect]
     Active Substance: METHOTREXATE
  223. METHOTREXATE [Suspect]
     Active Substance: METHOTREXATE
     Route: 048
  224. CHLORHEXIDINE GLUCONATE\ISOPROPYL ALCOHOL [Suspect]
     Active Substance: CHLORHEXIDINE GLUCONATE\ISOPROPYL ALCOHOL
     Indication: Product used for unknown indication
  225. CHLORHEXIDINE GLUCONATE\ISOPROPYL ALCOHOL [Suspect]
     Active Substance: CHLORHEXIDINE GLUCONATE\ISOPROPYL ALCOHOL
  226. METHOTREXATE SODIUM [Suspect]
     Active Substance: METHOTREXATE SODIUM
     Indication: Rheumatoid arthritis
     Route: 048
  227. METHOTREXATE SODIUM [Suspect]
     Active Substance: METHOTREXATE SODIUM
     Dosage: 25 MG, QW (TABLET)
     Route: 048
  228. METHOTREXATE SODIUM [Suspect]
     Active Substance: METHOTREXATE SODIUM
     Dosage: 20 MG, QD
     Route: 058
  229. METHOTREXATE SODIUM [Suspect]
     Active Substance: METHOTREXATE SODIUM
     Indication: Rheumatoid arthritis
     Dosage: 25 MG, QW
     Route: 058
  230. METHOTREXATE SODIUM [Suspect]
     Active Substance: METHOTREXATE SODIUM
     Route: 048
  231. METHOTREXATE SODIUM [Suspect]
     Active Substance: METHOTREXATE SODIUM
     Dosage: 15 MG, QW
     Route: 058
  232. METHOTREXATE SODIUM [Suspect]
     Active Substance: METHOTREXATE SODIUM
     Dosage: 20 MG, QW (SOLUTION FOR INJECTION)
     Route: 058
  233. METHOTREXATE SODIUM [Suspect]
     Active Substance: METHOTREXATE SODIUM
     Dosage: 20 MG, QW (SOLUTION FOR INJECTION)
     Route: 058
  234. ENBREL [Suspect]
     Active Substance: ETANERCEPT
     Indication: Rheumatoid arthritis
     Route: 058
  235. ENBREL [Suspect]
     Active Substance: ETANERCEPT
  236. ENBREL [Suspect]
     Active Substance: ETANERCEPT
  237. ENBREL [Suspect]
     Active Substance: ETANERCEPT
  238. ENBREL [Suspect]
     Active Substance: ETANERCEPT
  239. ENBREL [Suspect]
     Active Substance: ETANERCEPT
  240. ENBREL [Suspect]
     Active Substance: ETANERCEPT
     Dosage: 7 MONTHS
     Route: 058
  241. ENBREL [Suspect]
     Active Substance: ETANERCEPT
     Route: 058
  242. ENBREL [Suspect]
     Active Substance: ETANERCEPT
     Dosage: 7 MONTHS
  243. ENBREL [Suspect]
     Active Substance: ETANERCEPT
  244. ENBREL [Suspect]
     Active Substance: ETANERCEPT
  245. ENBREL [Suspect]
     Active Substance: ETANERCEPT
  246. ENBREL [Suspect]
     Active Substance: ETANERCEPT
  247. ENBREL [Suspect]
     Active Substance: ETANERCEPT
  248. ENBREL [Suspect]
     Active Substance: ETANERCEPT
  249. ENBREL [Suspect]
     Active Substance: ETANERCEPT
     Route: 058
  250. ENBREL [Suspect]
     Active Substance: ETANERCEPT
  251. ENBREL [Suspect]
     Active Substance: ETANERCEPT
  252. ENBREL [Suspect]
     Active Substance: ETANERCEPT
     Route: 058
  253. ENBREL [Suspect]
     Active Substance: ETANERCEPT
     Dosage: 10 MG, QW
     Route: 058
  254. ENBREL [Suspect]
     Active Substance: ETANERCEPT
     Route: 058
  255. ENBREL [Suspect]
     Active Substance: ETANERCEPT
     Dosage: 40 MG, QW
     Route: 058
  256. ENBREL [Suspect]
     Active Substance: ETANERCEPT
     Route: 058
  257. ENBREL [Suspect]
     Active Substance: ETANERCEPT
  258. ENBREL [Suspect]
     Active Substance: ETANERCEPT
     Route: 058
  259. ETANERCEPT [Suspect]
     Active Substance: ETANERCEPT
     Indication: Rheumatoid arthritis
     Route: 058
  260. ETANERCEPT [Suspect]
     Active Substance: ETANERCEPT
  261. ETANERCEPT [Suspect]
     Active Substance: ETANERCEPT
  262. RITUXIMAB [Suspect]
     Active Substance: RITUXIMAB
     Indication: Rheumatoid arthritis
     Route: 058
  263. RITUXIMAB [Suspect]
     Active Substance: RITUXIMAB
     Route: 058
  264. RITUXIMAB [Suspect]
     Active Substance: RITUXIMAB
     Dosage: 2000 MG, QD
  265. RITUXIMAB [Suspect]
     Active Substance: RITUXIMAB
     Route: 043
  266. RITUXIMAB [Suspect]
     Active Substance: RITUXIMAB
     Route: 043
  267. RITUXIMAB [Suspect]
     Active Substance: RITUXIMAB
  268. RITUXIMAB [Suspect]
     Active Substance: RITUXIMAB
     Route: 058
  269. RITUXIMAB [Suspect]
     Active Substance: RITUXIMAB
     Route: 043
  270. RITUXIMAB [Suspect]
     Active Substance: RITUXIMAB
     Dosage: 2000 MG, QD, ROA: INTRAVENOUS BOLUS
  271. RITUXIMAB [Suspect]
     Active Substance: RITUXIMAB
     Route: 058
  272. RITUXIMAB [Suspect]
     Active Substance: RITUXIMAB
     Route: 043
  273. RITUXIMAB [Suspect]
     Active Substance: RITUXIMAB
     Dosage: 2000 MG, QD, ROA: INTRAVENOUS BOLUS
  274. RITUXIMAB [Suspect]
     Active Substance: RITUXIMAB
  275. RITUXIMAB [Suspect]
     Active Substance: RITUXIMAB
  276. RITUXIMAB [Suspect]
     Active Substance: RITUXIMAB
  277. RITUXIMAB [Suspect]
     Active Substance: RITUXIMAB
     Dosage: 2000 MG, QD, ROA: INTRAVENOUS BOLUS
  278. RITUXIMAB [Suspect]
     Active Substance: RITUXIMAB
     Dosage: 2 MG, QD, ROA: INTRAVENOUS BOLUS
  279. RITUXIMAB [Suspect]
     Active Substance: RITUXIMAB
     Dosage: 2000 MG, QD, ROA: INTRAVENOUS BOLUS
  280. RITUXIMAB [Suspect]
     Active Substance: RITUXIMAB
     Dosage: 2000 MG, QD, ROA: INTRAVENOUS BOLUS
  281. RITUXIMAB [Suspect]
     Active Substance: RITUXIMAB
     Dosage: 1 G, Q12H
  282. RITUXIMAB [Suspect]
     Active Substance: RITUXIMAB
  283. RITUXIMAB [Suspect]
     Active Substance: RITUXIMAB
  284. RITUXIMAB [Suspect]
     Active Substance: RITUXIMAB
  285. RITUXIMAB [Suspect]
     Active Substance: RITUXIMAB
     Route: 058
  286. RITUXIMAB [Suspect]
     Active Substance: RITUXIMAB
     Route: 058
  287. RITUXIMAB [Suspect]
     Active Substance: RITUXIMAB
     Route: 058
  288. RITUXIMAB [Suspect]
     Active Substance: RITUXIMAB
     Route: 058
  289. RITUXIMAB [Suspect]
     Active Substance: RITUXIMAB
  290. RITUXIMAB [Suspect]
     Active Substance: RITUXIMAB
     Dosage: 2000 MG, QD, ROA: INTRAVENOUS BOLUS
  291. RITUXIMAB [Suspect]
     Active Substance: RITUXIMAB
     Dosage: 2000 MG, QD, ROA: INTRAVENOUS BOLUS
  292. RITUXIMAB [Suspect]
     Active Substance: RITUXIMAB
     Dosage: 2000 MG, QD, ROA: INTRAVENOUS BOLUS
  293. RITUXIMAB [Suspect]
     Active Substance: RITUXIMAB
  294. RITUXIMAB [Suspect]
     Active Substance: RITUXIMAB
  295. RITUXIMAB [Suspect]
     Active Substance: RITUXIMAB
     Dosage: 2 G, QD,, ROA: INTRAVENOUS BOLUS
  296. RITUXIMAB [Suspect]
     Active Substance: RITUXIMAB
  297. RITUXIMAB [Suspect]
     Active Substance: RITUXIMAB
     Dosage: 2 G, QD, INTRAVENOUS BOLUS
  298. RITUXIMAB [Suspect]
     Active Substance: RITUXIMAB
  299. RITUXIMAB [Suspect]
     Active Substance: RITUXIMAB
  300. RITUXIMAB [Suspect]
     Active Substance: RITUXIMAB
  301. RITUXIMAB [Suspect]
     Active Substance: RITUXIMAB
     Dosage: 2000 MG, QD
  302. RITUXIMAB [Suspect]
     Active Substance: RITUXIMAB
  303. RITUXIMAB [Suspect]
     Active Substance: RITUXIMAB
     Dosage: 2 G, QD, ROA: INTRAVENOUS BOLUS
  304. RITUXIMAB [Suspect]
     Active Substance: RITUXIMAB
     Dosage: 1 G, Q12H
  305. RITUXIMAB [Suspect]
     Active Substance: RITUXIMAB
  306. RITUXIMAB [Suspect]
     Active Substance: RITUXIMAB
  307. RITUXIMAB [Suspect]
     Active Substance: RITUXIMAB
     Dosage: ROUTE: INTRAVENOUS BOLUS
  308. RITUXIMAB [Suspect]
     Active Substance: RITUXIMAB
  309. RITUXIMAB [Suspect]
     Active Substance: RITUXIMAB
     Route: 042
  310. RITUXIMAB [Suspect]
     Active Substance: RITUXIMAB
     Dosage: ROUTE: INTRAVENOUS
     Route: 042
  311. RITUXIMAB [Suspect]
     Active Substance: RITUXIMAB
  312. RITUXIMAB [Suspect]
     Active Substance: RITUXIMAB
     Dosage: ROUTE: INTRAVENOUS
     Route: 042
  313. RITUXIMAB [Suspect]
     Active Substance: RITUXIMAB
     Dosage: ROUTE: INTRAVENOUS
     Route: 042
  314. RITUXIMAB [Suspect]
     Active Substance: RITUXIMAB
  315. RITUXIMAB [Suspect]
     Active Substance: RITUXIMAB
     Dosage: ROUTE: INTRAVENOUS BOLUS
  316. RITUXIMAB [Suspect]
     Active Substance: RITUXIMAB
     Dosage: ROUTE: INTRAVENOUS BOLUS
  317. RITUXIMAB [Suspect]
     Active Substance: RITUXIMAB
     Dosage: ROUTE: INTRAVENOUS BOLUS
  318. RITUXIMAB [Suspect]
     Active Substance: RITUXIMAB
     Dosage: ROUTE: INTRAVENOUS BOLUS
  319. RITUXIMAB [Suspect]
     Active Substance: RITUXIMAB
     Dosage: ROUTE: INTRAVENOUS BOLUS
  320. RITUXIMAB [Suspect]
     Active Substance: RITUXIMAB
  321. RITUXIMAB [Suspect]
     Active Substance: RITUXIMAB
  322. RITUXIMAB [Suspect]
     Active Substance: RITUXIMAB
  323. STELARA [Suspect]
     Active Substance: USTEKINUMAB
     Indication: Rheumatoid arthritis
  324. STELARA [Suspect]
     Active Substance: USTEKINUMAB
     Route: 058
  325. STELARA [Suspect]
     Active Substance: USTEKINUMAB
     Route: 058
  326. STELARA [Suspect]
     Active Substance: USTEKINUMAB
     Route: 058
  327. REMICADE [Suspect]
     Active Substance: INFLIXIMAB
     Indication: Rheumatoid arthritis
     Dosage: POWDER FOR SOLUTION, ROA: INTRAVENOUS BOLUS
  328. REMICADE [Suspect]
     Active Substance: INFLIXIMAB
  329. REMICADE [Suspect]
     Active Substance: INFLIXIMAB
  330. REMICADE [Suspect]
     Active Substance: INFLIXIMAB
  331. REMICADE [Suspect]
     Active Substance: INFLIXIMAB
     Dosage: POWDER FOR SOLUTION, ROA: INTRAVENOUS
  332. REMICADE [Suspect]
     Active Substance: INFLIXIMAB
  333. REMICADE [Suspect]
     Active Substance: INFLIXIMAB
  334. REMICADE [Suspect]
     Active Substance: INFLIXIMAB
  335. REMICADE [Suspect]
     Active Substance: INFLIXIMAB
  336. REMICADE [Suspect]
     Active Substance: INFLIXIMAB
  337. REMICADE [Suspect]
     Active Substance: INFLIXIMAB
  338. REMICADE [Suspect]
     Active Substance: INFLIXIMAB
  339. REMICADE [Suspect]
     Active Substance: INFLIXIMAB
  340. REMICADE [Suspect]
     Active Substance: INFLIXIMAB
  341. REMICADE [Suspect]
     Active Substance: INFLIXIMAB
  342. REMICADE [Suspect]
     Active Substance: INFLIXIMAB
  343. REMICADE [Suspect]
     Active Substance: INFLIXIMAB
  344. REMICADE [Suspect]
     Active Substance: INFLIXIMAB
  345. REMICADE [Suspect]
     Active Substance: INFLIXIMAB
  346. REMICADE [Suspect]
     Active Substance: INFLIXIMAB
  347. REMICADE [Suspect]
     Active Substance: INFLIXIMAB
  348. REMICADE [Suspect]
     Active Substance: INFLIXIMAB
  349. REMICADE [Suspect]
     Active Substance: INFLIXIMAB
  350. REMICADE [Suspect]
     Active Substance: INFLIXIMAB
  351. REMICADE [Suspect]
     Active Substance: INFLIXIMAB
  352. REMICADE [Suspect]
     Active Substance: INFLIXIMAB
  353. REMICADE [Suspect]
     Active Substance: INFLIXIMAB
     Dosage: POWDER FOR SOLUTION (9 MONTHS)
  354. REMICADE [Suspect]
     Active Substance: INFLIXIMAB
     Dosage: POWDER FOR SOLUTION, ROA: SUBCONJUNCTIVAL USE
  355. REMICADE [Suspect]
     Active Substance: INFLIXIMAB
     Dosage: POWDER FOR SOLUTION
  356. REMICADE [Suspect]
     Active Substance: INFLIXIMAB
  357. REMICADE [Suspect]
     Active Substance: INFLIXIMAB
  358. REMICADE [Suspect]
     Active Substance: INFLIXIMAB
  359. REMICADE [Suspect]
     Active Substance: INFLIXIMAB
     Dosage: 1000 MG, BID (POWDER FOR SOLUTION), ROA: INTRAVENOUS USE
  360. REMICADE [Suspect]
     Active Substance: INFLIXIMAB
     Dosage: 2000 MG, QD, ROA: INTRAVENOUS BOLUS
  361. REMICADE [Suspect]
     Active Substance: INFLIXIMAB
  362. REMICADE [Suspect]
     Active Substance: INFLIXIMAB
  363. REMICADE [Suspect]
     Active Substance: INFLIXIMAB
     Dosage: 2000 MG, QD (POWDER FOR SOLUTION), ROA: INTRAVENOUS USE
  364. DICLOFENAC SODIUM [Suspect]
     Active Substance: DICLOFENAC SODIUM
     Indication: Product used for unknown indication
  365. DICLOFENAC SODIUM [Suspect]
     Active Substance: DICLOFENAC SODIUM
     Indication: Rheumatoid arthritis
     Route: 058
  366. DICLOFENAC SODIUM [Suspect]
     Active Substance: DICLOFENAC SODIUM
  367. DICLOFENAC SODIUM [Suspect]
     Active Substance: DICLOFENAC SODIUM
  368. DICLOFENAC SODIUM [Suspect]
     Active Substance: DICLOFENAC SODIUM
     Route: 058
  369. DICLOFENAC SODIUM [Suspect]
     Active Substance: DICLOFENAC SODIUM
  370. DICLOFENAC SODIUM [Suspect]
     Active Substance: DICLOFENAC SODIUM
  371. DICLOFENAC SODIUM [Suspect]
     Active Substance: DICLOFENAC SODIUM
  372. DICLOFENAC SODIUM [Suspect]
     Active Substance: DICLOFENAC SODIUM
  373. DICLOFENAC SODIUM [Suspect]
     Active Substance: DICLOFENAC SODIUM
  374. DICLOFENAC SODIUM [Suspect]
     Active Substance: DICLOFENAC SODIUM
  375. DICLOFENAC SODIUM [Suspect]
     Active Substance: DICLOFENAC SODIUM
  376. DICLOFENAC SODIUM [Suspect]
     Active Substance: DICLOFENAC SODIUM
  377. DICLOFENAC SODIUM [Suspect]
     Active Substance: DICLOFENAC SODIUM
  378. DICLOFENAC SODIUM [Suspect]
     Active Substance: DICLOFENAC SODIUM
  379. DICLOFENAC SODIUM [Suspect]
     Active Substance: DICLOFENAC SODIUM
     Route: 058
  380. DICLOFENAC SODIUM [Suspect]
     Active Substance: DICLOFENAC SODIUM
     Route: 058
  381. DICLOFENAC SODIUM [Suspect]
     Active Substance: DICLOFENAC SODIUM
     Route: 058
  382. DICLOFENAC SODIUM [Suspect]
     Active Substance: DICLOFENAC SODIUM
     Route: 058
  383. DICLOFENAC SODIUM [Suspect]
     Active Substance: DICLOFENAC SODIUM
  384. ACETAMINOPHEN [Suspect]
     Active Substance: ACETAMINOPHEN
     Indication: Product used for unknown indication
  385. CETIRIZINE [Suspect]
     Active Substance: CETIRIZINE HYDROCHLORIDE
     Indication: Rheumatoid arthritis
     Route: 048
  386. CETIRIZINE [Suspect]
     Active Substance: CETIRIZINE HYDROCHLORIDE
     Indication: Off label use
     Route: 048
  387. CETIRIZINE [Suspect]
     Active Substance: CETIRIZINE HYDROCHLORIDE
     Route: 048
  388. CETIRIZINE [Suspect]
     Active Substance: CETIRIZINE HYDROCHLORIDE
  389. CETIRIZINE [Suspect]
     Active Substance: CETIRIZINE HYDROCHLORIDE
  390. CETIRIZINE [Suspect]
     Active Substance: CETIRIZINE HYDROCHLORIDE
  391. CETIRIZINE [Suspect]
     Active Substance: CETIRIZINE HYDROCHLORIDE
  392. CETIRIZINE [Suspect]
     Active Substance: CETIRIZINE HYDROCHLORIDE
     Route: 048
  393. CETIRIZINE [Suspect]
     Active Substance: CETIRIZINE HYDROCHLORIDE
  394. CETIRIZINE [Suspect]
     Active Substance: CETIRIZINE HYDROCHLORIDE
     Route: 048
  395. CETIRIZINE [Suspect]
     Active Substance: CETIRIZINE HYDROCHLORIDE
  396. CETIRIZINE [Suspect]
     Active Substance: CETIRIZINE HYDROCHLORIDE
     Route: 048
  397. CETIRIZINE [Suspect]
     Active Substance: CETIRIZINE HYDROCHLORIDE
     Route: 048
  398. CETIRIZINE [Suspect]
     Active Substance: CETIRIZINE HYDROCHLORIDE
  399. CETIRIZINE [Suspect]
     Active Substance: CETIRIZINE HYDROCHLORIDE
     Route: 048
  400. CETIRIZINE [Suspect]
     Active Substance: CETIRIZINE HYDROCHLORIDE
     Route: 048
  401. COSENTYX [Suspect]
     Active Substance: SECUKINUMAB
     Indication: Product used for unknown indication
  402. COSENTYX [Suspect]
     Active Substance: SECUKINUMAB
     Indication: Rheumatoid arthritis
  403. COSENTYX [Suspect]
     Active Substance: SECUKINUMAB
     Indication: Psoriatic arthropathy
  404. ADALIMUMAB [Suspect]
     Active Substance: ADALIMUMAB
     Indication: Rheumatoid arthritis
     Dosage: 40 MG
  405. ADALIMUMAB [Suspect]
     Active Substance: ADALIMUMAB
     Route: 058
  406. INFLIXIMAB [Suspect]
     Active Substance: INFLIXIMAB
     Indication: Rheumatoid arthritis
  407. INFLIXIMAB [Suspect]
     Active Substance: INFLIXIMAB
  408. INFLIXIMAB [Suspect]
     Active Substance: INFLIXIMAB
  409. INFLIXIMAB [Suspect]
     Active Substance: INFLIXIMAB
  410. INFLIXIMAB [Suspect]
     Active Substance: INFLIXIMAB
  411. INFLIXIMAB [Suspect]
     Active Substance: INFLIXIMAB
  412. INFLIXIMAB [Suspect]
     Active Substance: INFLIXIMAB
  413. INFLIXIMAB [Suspect]
     Active Substance: INFLIXIMAB
     Route: 048
  414. INFLIXIMAB [Suspect]
     Active Substance: INFLIXIMAB
  415. INFLIXIMAB [Suspect]
     Active Substance: INFLIXIMAB
  416. CIMZIA [Suspect]
     Active Substance: CERTOLIZUMAB PEGOL
     Indication: Rheumatoid arthritis
     Dosage: 200 MG
     Route: 058
  417. CIMZIA [Suspect]
     Active Substance: CERTOLIZUMAB PEGOL
     Route: 058
  418. CIMZIA [Suspect]
     Active Substance: CERTOLIZUMAB PEGOL
     Dosage: 200 MG, QW
     Route: 058
  419. CIMZIA [Suspect]
     Active Substance: CERTOLIZUMAB PEGOL
     Route: 058
  420. CIMZIA [Suspect]
     Active Substance: CERTOLIZUMAB PEGOL
  421. CIMZIA [Suspect]
     Active Substance: CERTOLIZUMAB PEGOL
     Route: 058
  422. CIMZIA [Suspect]
     Active Substance: CERTOLIZUMAB PEGOL
  423. CIMZIA [Suspect]
     Active Substance: CERTOLIZUMAB PEGOL
  424. CIMZIA [Suspect]
     Active Substance: CERTOLIZUMAB PEGOL
  425. CIMZIA [Suspect]
     Active Substance: CERTOLIZUMAB PEGOL
     Dosage: 200 MG, Q2W (SOLUTION FOR INJECTION)
     Route: 058
  426. CORTISONE ACETATE [Suspect]
     Active Substance: CORTISONE ACETATE
     Indication: Rheumatoid arthritis
  427. CORTISONE ACETATE [Suspect]
     Active Substance: CORTISONE ACETATE
     Indication: Product used for unknown indication
  428. CORTISONE ACETATE [Suspect]
     Active Substance: CORTISONE ACETATE
  429. CORTISONE ACETATE [Suspect]
     Active Substance: CORTISONE ACETATE
  430. DESOXIMETASONE [Suspect]
     Active Substance: DESOXIMETASONE
     Indication: Rheumatoid arthritis
  431. DESOXIMETASONE [Suspect]
     Active Substance: DESOXIMETASONE
  432. DESOXIMETASONE [Suspect]
     Active Substance: DESOXIMETASONE
  433. DESOXIMETASONE [Suspect]
     Active Substance: DESOXIMETASONE
  434. DESOXIMETASONE [Suspect]
     Active Substance: DESOXIMETASONE
     Route: 058
  435. DESOXIMETASONE [Suspect]
     Active Substance: DESOXIMETASONE
     Route: 048
  436. DESOXIMETASONE [Suspect]
     Active Substance: DESOXIMETASONE
     Route: 048
  437. DESOXIMETASONE [Suspect]
     Active Substance: DESOXIMETASONE
  438. DESOXIMETASONE [Suspect]
     Active Substance: DESOXIMETASONE
     Route: 058
  439. DESOXIMETASONE [Suspect]
     Active Substance: DESOXIMETASONE
  440. DESOXIMETASONE [Suspect]
     Active Substance: DESOXIMETASONE
  441. DESOXIMETASONE [Suspect]
     Active Substance: DESOXIMETASONE
     Route: 048
  442. FOSAMAX [Suspect]
     Active Substance: ALENDRONATE SODIUM
     Indication: Rheumatoid arthritis
     Route: 048
  443. FOSAMAX [Suspect]
     Active Substance: ALENDRONATE SODIUM
     Indication: Product used for unknown indication
  444. GOLD [Suspect]
     Active Substance: GOLD
     Indication: Product used for unknown indication
  445. GOLD [Suspect]
     Active Substance: GOLD
  446. HYDROCORTISONE ACETATE [Suspect]
     Active Substance: HYDROCORTISONE ACETATE
     Indication: Rheumatoid arthritis
     Route: 048
  447. HYDROCORTISONE ACETATE [Suspect]
     Active Substance: HYDROCORTISONE ACETATE
  448. HYDROXYCHLOROQUINE SULFATE [Suspect]
     Active Substance: HYDROXYCHLOROQUINE SULFATE
     Indication: Rheumatoid arthritis
     Dosage: UNK, Q24H
  449. HYDROXYCHLOROQUINE SULFATE [Suspect]
     Active Substance: HYDROXYCHLOROQUINE SULFATE
     Route: 048
  450. HYDROXYCHLOROQUINE SULFATE [Suspect]
     Active Substance: HYDROXYCHLOROQUINE SULFATE
     Route: 048
  451. HYDROXYCHLOROQUINE SULFATE [Suspect]
     Active Substance: HYDROXYCHLOROQUINE SULFATE
  452. HYDROXYCHLOROQUINE SULFATE [Suspect]
     Active Substance: HYDROXYCHLOROQUINE SULFATE
  453. HYDROXYCHLOROQUINE SULFATE [Suspect]
     Active Substance: HYDROXYCHLOROQUINE SULFATE
  454. HYDROXYCHLOROQUINE SULFATE [Suspect]
     Active Substance: HYDROXYCHLOROQUINE SULFATE
     Route: 048
  455. HYDROXYCHLOROQUINE SULFATE [Suspect]
     Active Substance: HYDROXYCHLOROQUINE SULFATE
  456. HYDROXYCHLOROQUINE SULFATE [Suspect]
     Active Substance: HYDROXYCHLOROQUINE SULFATE
     Route: 048
  457. HYDROXYCHLOROQUINE SULFATE [Suspect]
     Active Substance: HYDROXYCHLOROQUINE SULFATE
  458. HYDROXYCHLOROQUINE SULFATE [Suspect]
     Active Substance: HYDROXYCHLOROQUINE SULFATE
  459. HYDROXYCHLOROQUINE SULFATE [Suspect]
     Active Substance: HYDROXYCHLOROQUINE SULFATE
     Dosage: UNK UNK, QD
  460. HYDROXYCHLOROQUINE SULFATE [Suspect]
     Active Substance: HYDROXYCHLOROQUINE SULFATE
     Dosage: 400 MG, QD
     Route: 048
  461. HYDROXYCHLOROQUINE SULFATE [Suspect]
     Active Substance: HYDROXYCHLOROQUINE SULFATE
     Dosage: 400 MG, QD
     Route: 048
  462. HYDROXYCHLOROQUINE SULFATE [Suspect]
     Active Substance: HYDROXYCHLOROQUINE SULFATE
  463. HYDROXYCHLOROQUINE SULFATE [Suspect]
     Active Substance: HYDROXYCHLOROQUINE SULFATE
     Route: 048
  464. HYDROXYCHLOROQUINE SULFATE [Suspect]
     Active Substance: HYDROXYCHLOROQUINE SULFATE
  465. HYDROXYCHLOROQUINE SULFATE [Suspect]
     Active Substance: HYDROXYCHLOROQUINE SULFATE
     Route: 048
  466. LEFLUNOMIDE [Suspect]
     Active Substance: LEFLUNOMIDE
     Indication: Rheumatoid arthritis
     Dosage: 20 MG, QD
  467. LEFLUNOMIDE [Suspect]
     Active Substance: LEFLUNOMIDE
     Dosage: 10 MG, QD
     Route: 048
  468. LEFLUNOMIDE [Suspect]
     Active Substance: LEFLUNOMIDE
  469. CLIOQUINOL\FLUMETHASONE [Suspect]
     Active Substance: CLIOQUINOL\FLUMETHASONE
     Indication: Product used for unknown indication
     Route: 058
  470. CLIOQUINOL\FLUMETHASONE [Suspect]
     Active Substance: CLIOQUINOL\FLUMETHASONE
  471. METHYLPREDNISOLONE [Suspect]
     Active Substance: METHYLPREDNISOLONE
     Indication: Product used for unknown indication
  472. MINOCYCLINE [Suspect]
     Active Substance: MINOCYCLINE HYDROCHLORIDE
     Indication: Rheumatoid arthritis
  473. MYOCHRYSINE [Suspect]
     Active Substance: GOLD SODIUM THIOMALATE
     Indication: Rheumatoid arthritis
     Route: 030
  474. MYOCHRYSINE [Suspect]
     Active Substance: GOLD SODIUM THIOMALATE
     Route: 030
  475. MYOCHRYSINE [Suspect]
     Active Substance: GOLD SODIUM THIOMALATE
     Route: 030
  476. MYOCHRYSINE [Suspect]
     Active Substance: GOLD SODIUM THIOMALATE
  477. ORENCIA [Suspect]
     Active Substance: ABATACEPT
     Indication: Rheumatoid arthritis
     Route: 042
  478. ORENCIA [Suspect]
     Active Substance: ABATACEPT
     Indication: Product used for unknown indication
     Dosage: 125 MG, QW, ROA: SUBCUTANEOUS
     Route: 058
  479. ORENCIA [Suspect]
     Active Substance: ABATACEPT
  480. ORENCIA [Suspect]
     Active Substance: ABATACEPT
  481. ORENCIA [Suspect]
     Active Substance: ABATACEPT
     Dosage: 125 MG, QW, ROA: SUBCUTANEOUS
     Route: 058
  482. ORENCIA [Suspect]
     Active Substance: ABATACEPT
     Route: 042
  483. ORENCIA [Suspect]
     Active Substance: ABATACEPT
  484. ORENCIA [Suspect]
     Active Substance: ABATACEPT
  485. ORENCIA [Suspect]
     Active Substance: ABATACEPT
  486. ORENCIA [Suspect]
     Active Substance: ABATACEPT
  487. ORENCIA [Suspect]
     Active Substance: ABATACEPT
     Route: 042
  488. OTEZLA [Suspect]
     Active Substance: APREMILAST
     Indication: Rheumatoid arthritis
     Dosage: 6 MG, QD
  489. PHTHALYLSULFATHIAZOLE [Suspect]
     Active Substance: PHTHALYLSULFATHIAZOLE
     Indication: Rheumatoid arthritis
     Dosage: 2000 MG, QD
  490. PHTHALYLSULFATHIAZOLE [Suspect]
     Active Substance: PHTHALYLSULFATHIAZOLE
     Indication: Product used for unknown indication
     Route: 058
  491. PHTHALYLSULFATHIAZOLE [Suspect]
     Active Substance: PHTHALYLSULFATHIAZOLE
     Route: 058
  492. PHTHALYLSULFATHIAZOLE [Suspect]
     Active Substance: PHTHALYLSULFATHIAZOLE
     Dosage: 1000 MG, BID
  493. PHTHALYLSULFATHIAZOLE [Suspect]
     Active Substance: PHTHALYLSULFATHIAZOLE
  494. PHTHALYLSULFATHIAZOLE [Suspect]
     Active Substance: PHTHALYLSULFATHIAZOLE
     Dosage: 1000 MG, BID
  495. PHTHALYLSULFATHIAZOLE [Suspect]
     Active Substance: PHTHALYLSULFATHIAZOLE
     Dosage: 1000 MG (1 EVERY 5 DAYS)
     Route: 048
  496. PHTHALYLSULFATHIAZOLE [Suspect]
     Active Substance: PHTHALYLSULFATHIAZOLE
     Dosage: 1000 MG, BID
  497. PHTHALYLSULFATHIAZOLE [Suspect]
     Active Substance: PHTHALYLSULFATHIAZOLE
     Dosage: 1000 MG (1 EVERY 5 DAYS)
  498. PHTHALYLSULFATHIAZOLE [Suspect]
     Active Substance: PHTHALYLSULFATHIAZOLE
  499. PHTHALYLSULFATHIAZOLE [Suspect]
     Active Substance: PHTHALYLSULFATHIAZOLE
     Dosage: 2000 MG, QD
  500. PHTHALYLSULFATHIAZOLE [Suspect]
     Active Substance: PHTHALYLSULFATHIAZOLE
  501. PHTHALYLSULFATHIAZOLE [Suspect]
     Active Substance: PHTHALYLSULFATHIAZOLE
     Route: 058
  502. PHTHALYLSULFATHIAZOLE [Suspect]
     Active Substance: PHTHALYLSULFATHIAZOLE
     Dosage: 1000 MG, BID
  503. PHTHALYLSULFATHIAZOLE [Suspect]
     Active Substance: PHTHALYLSULFATHIAZOLE
     Dosage: 1000 MG (1 EVERY 5 DAYS)
     Route: 048
  504. PHTHALYLSULFATHIAZOLE [Suspect]
     Active Substance: PHTHALYLSULFATHIAZOLE
     Route: 058
  505. PHTHALYLSULFATHIAZOLE [Suspect]
     Active Substance: PHTHALYLSULFATHIAZOLE
     Dosage: 100 MG, BID
  506. PHTHALYLSULFATHIAZOLE [Suspect]
     Active Substance: PHTHALYLSULFATHIAZOLE
     Dosage: 2000 MG, QD
  507. PHTHALYLSULFATHIAZOLE [Suspect]
     Active Substance: PHTHALYLSULFATHIAZOLE
     Dosage: 200 MG, QD
  508. PHTHALYLSULFATHIAZOLE [Suspect]
     Active Substance: PHTHALYLSULFATHIAZOLE
     Route: 058
  509. PREDNISONE [Suspect]
     Active Substance: PREDNISONE
     Indication: Rheumatoid arthritis
  510. PREDNISONE [Suspect]
     Active Substance: PREDNISONE
  511. PREDNISONE [Suspect]
     Active Substance: PREDNISONE
     Dosage: 50 MG, QD
     Route: 048
  512. PREDNISONE [Suspect]
     Active Substance: PREDNISONE
  513. PREDNISONE [Suspect]
     Active Substance: PREDNISONE
     Dosage: 20 MG, QD
     Route: 048
  514. PSEUDOEPHEDRINE HYDROCHLORIDE [Suspect]
     Active Substance: PSEUDOEPHEDRINE HYDROCHLORIDE
     Indication: Rheumatoid arthritis
  515. PSEUDOEPHEDRINE HYDROCHLORIDE [Suspect]
     Active Substance: PSEUDOEPHEDRINE HYDROCHLORIDE
     Indication: Product used for unknown indication
  516. PSEUDOEPHEDRINE HYDROCHLORIDE [Suspect]
     Active Substance: PSEUDOEPHEDRINE HYDROCHLORIDE
  517. PSEUDOEPHEDRINE HYDROCHLORIDE [Suspect]
     Active Substance: PSEUDOEPHEDRINE HYDROCHLORIDE
  518. PSEUDOEPHEDRINE HYDROCHLORIDE [Suspect]
     Active Substance: PSEUDOEPHEDRINE HYDROCHLORIDE
  519. PSEUDOEPHEDRINE HYDROCHLORIDE [Suspect]
     Active Substance: PSEUDOEPHEDRINE HYDROCHLORIDE
  520. PSEUDOEPHEDRINE HYDROCHLORIDE [Suspect]
     Active Substance: PSEUDOEPHEDRINE HYDROCHLORIDE
  521. PSEUDOEPHEDRINE HYDROCHLORIDE [Suspect]
     Active Substance: PSEUDOEPHEDRINE HYDROCHLORIDE
  522. PSEUDOEPHEDRINE HYDROCHLORIDE [Suspect]
     Active Substance: PSEUDOEPHEDRINE HYDROCHLORIDE
  523. PSEUDOEPHEDRINE HYDROCHLORIDE [Suspect]
     Active Substance: PSEUDOEPHEDRINE HYDROCHLORIDE
  524. PSEUDOEPHEDRINE HYDROCHLORIDE [Suspect]
     Active Substance: PSEUDOEPHEDRINE HYDROCHLORIDE
  525. PSEUDOEPHEDRINE HYDROCHLORIDE [Suspect]
     Active Substance: PSEUDOEPHEDRINE HYDROCHLORIDE
  526. PSEUDOEPHEDRINE HYDROCHLORIDE [Suspect]
     Active Substance: PSEUDOEPHEDRINE HYDROCHLORIDE
  527. SULFASALAZINE [Suspect]
     Active Substance: SULFASALAZINE
     Indication: Rheumatoid arthritis
  528. SULFASALAZINE [Suspect]
     Active Substance: SULFASALAZINE
     Route: 058
  529. SULFASALAZINE [Suspect]
     Active Substance: SULFASALAZINE
     Route: 058
  530. SULFASALAZINE [Suspect]
     Active Substance: SULFASALAZINE
  531. SULFASALAZINE [Suspect]
     Active Substance: SULFASALAZINE
  532. SULFASALAZINE [Suspect]
     Active Substance: SULFASALAZINE
     Route: 058
  533. SULFASALAZINE [Suspect]
     Active Substance: SULFASALAZINE
     Route: 058
  534. SIMPONI [Suspect]
     Active Substance: GOLIMUMAB
     Indication: Product used for unknown indication
     Route: 058
  535. SIMPONI [Suspect]
     Active Substance: GOLIMUMAB
     Indication: Rheumatoid arthritis
  536. SIRUKUMAB [Suspect]
     Active Substance: SIRUKUMAB
     Indication: Product used for unknown indication
  537. SIRUKUMAB [Suspect]
     Active Substance: SIRUKUMAB
  538. SIRUKUMAB [Suspect]
     Active Substance: SIRUKUMAB
  539. GOLD SODIUM THIOMALATE [Suspect]
     Active Substance: GOLD SODIUM THIOMALATE
     Indication: Product used for unknown indication
  540. GOLD SODIUM THIOMALATE [Suspect]
     Active Substance: GOLD SODIUM THIOMALATE
     Route: 048
  541. GOLD SODIUM THIOMALATE [Suspect]
     Active Substance: GOLD SODIUM THIOMALATE
     Route: 030
  542. GOLD SODIUM THIOMALATE [Suspect]
     Active Substance: GOLD SODIUM THIOMALATE
     Route: 048
  543. GOLD SODIUM THIOMALATE [Suspect]
     Active Substance: GOLD SODIUM THIOMALATE
     Route: 030
  544. GOLD SODIUM THIOMALATE [Suspect]
     Active Substance: GOLD SODIUM THIOMALATE
     Route: 030
  545. GOLD SODIUM THIOMALATE [Suspect]
     Active Substance: GOLD SODIUM THIOMALATE
     Route: 048
  546. SULFASALAZINE [Suspect]
     Active Substance: SULFASALAZINE
     Indication: Rheumatoid arthritis
     Dosage: 1 MG
     Route: 048
  547. SULFASALAZINE [Suspect]
     Active Substance: SULFASALAZINE
     Dosage: 1 G, BID
  548. SULFASALAZINE [Suspect]
     Active Substance: SULFASALAZINE
     Route: 058
  549. SULFASALAZINE [Suspect]
     Active Substance: SULFASALAZINE
  550. SULFASALAZINE [Suspect]
     Active Substance: SULFASALAZINE
     Dosage: 1000 MG (1 EVERY 5 DAYS)
     Route: 048
  551. SULFASALAZINE [Suspect]
     Active Substance: SULFASALAZINE
     Route: 048
  552. SULFASALAZINE [Suspect]
     Active Substance: SULFASALAZINE
     Dosage: 300 MG, QD
     Route: 058
  553. SULFASALAZINE [Suspect]
     Active Substance: SULFASALAZINE
     Route: 048
  554. SULFASALAZINE [Suspect]
     Active Substance: SULFASALAZINE
     Route: 048
  555. SULFASALAZINE [Suspect]
     Active Substance: SULFASALAZINE
  556. SULFASALAZINE [Suspect]
     Active Substance: SULFASALAZINE
     Dosage: 1 MG
     Route: 048
  557. SULFASALAZINE [Suspect]
     Active Substance: SULFASALAZINE
  558. SULFASALAZINE [Suspect]
     Active Substance: SULFASALAZINE
     Route: 048
  559. SULFASALAZINE [Suspect]
     Active Substance: SULFASALAZINE
     Dosage: 2 G, QD
  560. SULFASALAZINE [Suspect]
     Active Substance: SULFASALAZINE
     Route: 058
  561. SULFASALAZINE [Suspect]
     Active Substance: SULFASALAZINE
     Route: 048
  562. SULFASALAZINE [Suspect]
     Active Substance: SULFASALAZINE
     Dosage: 1000 MG, BID
     Route: 048
  563. SULFASALAZINE [Suspect]
     Active Substance: SULFASALAZINE
  564. SULFASALAZINE [Suspect]
     Active Substance: SULFASALAZINE
  565. SULFASALAZINE [Suspect]
     Active Substance: SULFASALAZINE
     Dosage: 1 DOSAGE FORM, BID
  566. SULFASALAZINE [Suspect]
     Active Substance: SULFASALAZINE
  567. SULFASALAZINE [Suspect]
     Active Substance: SULFASALAZINE
     Route: 058
  568. SULFASALAZINE [Suspect]
     Active Substance: SULFASALAZINE
     Dosage: 2 G, QD
     Route: 058
  569. SULFASALAZINE [Suspect]
     Active Substance: SULFASALAZINE
     Dosage: 2000 MG, QD
  570. SULFASALAZINE [Suspect]
     Active Substance: SULFASALAZINE
  571. SULFASALAZINE [Suspect]
     Active Substance: SULFASALAZINE
     Route: 058
  572. SULFASALAZINE [Suspect]
     Active Substance: SULFASALAZINE
  573. SULFASALAZINE [Suspect]
     Active Substance: SULFASALAZINE
  574. SULFASALAZINE [Suspect]
     Active Substance: SULFASALAZINE
     Route: 058
  575. XELJANZ [Suspect]
     Active Substance: TOFACITINIB CITRATE
     Indication: Rheumatoid arthritis
  576. XELJANZ [Suspect]
     Active Substance: TOFACITINIB CITRATE
     Route: 048
  577. XELJANZ [Suspect]
     Active Substance: TOFACITINIB CITRATE
     Route: 048
  578. XELJANZ [Suspect]
     Active Substance: TOFACITINIB CITRATE
     Dosage: 10 MG, QD
  579. XELJANZ [Suspect]
     Active Substance: TOFACITINIB CITRATE
     Dosage: 5 MG (1 EVERY 5 DAYS)
     Route: 048
  580. XELJANZ [Suspect]
     Active Substance: TOFACITINIB CITRATE
     Dosage: 10 MG, QD
  581. XELJANZ [Suspect]
     Active Substance: TOFACITINIB CITRATE
     Dosage: 10 MG, QD
  582. XELJANZ [Suspect]
     Active Substance: TOFACITINIB CITRATE
     Dosage: 5 MG
     Route: 048
  583. XELJANZ [Suspect]
     Active Substance: TOFACITINIB CITRATE
     Dosage: 10 MG, QD
  584. XELJANZ [Suspect]
     Active Substance: TOFACITINIB CITRATE
     Dosage: 5 MG (1 EVERY 5 DAYS)
     Route: 048
  585. XELJANZ [Suspect]
     Active Substance: TOFACITINIB CITRATE
     Dosage: 240 MG, QD
  586. XELJANZ [Suspect]
     Active Substance: TOFACITINIB CITRATE
     Dosage: 10 MG, QD
  587. XELJANZ [Suspect]
     Active Substance: TOFACITINIB CITRATE
     Dosage: 10 MG, QD
  588. XELJANZ [Suspect]
     Active Substance: TOFACITINIB CITRATE
     Dosage: 10 MG, QD
  589. FLUMETHASONE [Suspect]
     Active Substance: FLUMETHASONE
     Indication: Product used for unknown indication
     Route: 058
  590. FLUMETHASONE [Suspect]
     Active Substance: FLUMETHASONE
  591. HUMIRA [Suspect]
     Active Substance: ADALIMUMAB
     Indication: Rheumatoid arthritis
     Dosage: 40 MG, QW SOLUTION
     Route: 058
  592. HUMIRA [Suspect]
     Active Substance: ADALIMUMAB
     Dosage: 40 MG, QW SOLUTION
     Route: 058
  593. TRAMADOL HYDROCHLORIDE [Suspect]
     Active Substance: TRAMADOL HYDROCHLORIDE
     Indication: Product used for unknown indication
     Dosage: 20 MG, QD
  594. TRAMADOL HYDROCHLORIDE [Suspect]
     Active Substance: TRAMADOL HYDROCHLORIDE
     Dosage: 20 MG, QD
  595. TRAMADOL HYDROCHLORIDE [Suspect]
     Active Substance: TRAMADOL HYDROCHLORIDE
     Dosage: 20 MG, QD
  596. COSENTYX [Concomitant]
     Active Substance: SECUKINUMAB
     Indication: Product used for unknown indication
  597. NAPROXEN [Concomitant]
     Active Substance: NAPROXEN
     Indication: Product used for unknown indication
  598. HYDROXYCHLOROQUINE [Concomitant]
     Active Substance: HYDROXYCHLOROQUINE
     Indication: Product used for unknown indication
  599. HYDROXYCHLOROQUINE [Concomitant]
     Active Substance: HYDROXYCHLOROQUINE
  600. HYDROXYCHLOROQUINE [Concomitant]
     Active Substance: HYDROXYCHLOROQUINE
  601. DESOGESTREL\ETHINYL ESTRADIOL [Concomitant]
     Active Substance: DESOGESTREL\ETHINYL ESTRADIOL
     Indication: Product used for unknown indication
  602. AIMOVIG [Suspect]
     Active Substance: ERENUMAB-AOOE
     Indication: Migraine
  603. AIMOVIG [Suspect]
     Active Substance: ERENUMAB-AOOE
  604. RITUXAN [Suspect]
     Active Substance: RITUXIMAB
     Indication: Rheumatoid arthritis
     Dosage: 1 G, Q12H (NOT OTHERWISE SPECIFIED)
     Route: 042
  605. RITUXAN [Suspect]
     Active Substance: RITUXIMAB
     Dosage: 2000 MG, QD (NOT OTHERWISE SPECIFIED)
     Route: 042
  606. RITUXAN [Suspect]
     Active Substance: RITUXIMAB
     Dosage: 1 G, Q12H
  607. RITUXAN [Suspect]
     Active Substance: RITUXIMAB
  608. RITUXAN [Suspect]
     Active Substance: RITUXIMAB
     Route: 050
  609. RITUXAN [Suspect]
     Active Substance: RITUXIMAB
     Route: 058
  610. RITUXAN [Suspect]
     Active Substance: RITUXIMAB
     Route: 050
  611. RITUXAN [Suspect]
     Active Substance: RITUXIMAB
     Route: 043
  612. RITUXAN [Suspect]
     Active Substance: RITUXIMAB
     Dosage: 1000 MG, BID (NOT OTHERWISE SPECIFIED)
     Route: 050
  613. RITUXAN [Suspect]
     Active Substance: RITUXIMAB
     Route: 043
  614. RITUXAN [Suspect]
     Active Substance: RITUXIMAB
     Dosage: 1000 MG, (NOT OTHERWISE SPECIFIED)
     Route: 050
  615. RITUXAN [Suspect]
     Active Substance: RITUXIMAB
     Dosage: 1000 MG, (NOT OTHERWISE SPECIFIED)
     Route: 042
  616. RITUXAN [Suspect]
     Active Substance: RITUXIMAB
     Route: 050
  617. RITUXAN [Suspect]
     Active Substance: RITUXIMAB
     Route: 058
  618. RITUXAN [Suspect]
     Active Substance: RITUXIMAB
     Dosage: 1 G, Q24H (NOT OTHERWISE SPECIFIED)
     Route: 042
  619. RITUXAN [Suspect]
     Active Substance: RITUXIMAB
     Dosage: 2 G, QD (NOT OTHERWISE SPECIFIED)
     Route: 042
  620. RITUXAN [Suspect]
     Active Substance: RITUXIMAB
     Dosage: 1000 MG, BID
  621. RITUXAN [Suspect]
     Active Substance: RITUXIMAB
     Route: 042
  622. RITUXAN [Suspect]
     Active Substance: RITUXIMAB
     Dosage: 5 MONTHS
     Route: 042
  623. RITUXAN [Suspect]
     Active Substance: RITUXIMAB
     Dosage: 5 MONTHS
     Route: 042
  624. RITUXAN [Suspect]
     Active Substance: RITUXIMAB
     Dosage: 5 MONTHS
     Route: 042
  625. RITUXAN [Suspect]
     Active Substance: RITUXIMAB
     Dosage: 5 MONTHS
     Route: 042
  626. RITUXAN [Suspect]
     Active Substance: RITUXIMAB
     Dosage: 5 MONTHS
     Route: 042
  627. RITUXAN [Suspect]
     Active Substance: RITUXIMAB
     Dosage: 5 MONTHS
     Route: 042
  628. RITUXAN [Suspect]
     Active Substance: RITUXIMAB
     Route: 050
  629. RITUXAN [Suspect]
     Active Substance: RITUXIMAB
     Route: 042
  630. RITUXAN [Suspect]
     Active Substance: RITUXIMAB
     Route: 050
  631. RITUXAN [Suspect]
     Active Substance: RITUXIMAB
     Route: 043
  632. RITUXAN [Suspect]
     Active Substance: RITUXIMAB
     Route: 050
  633. RITUXAN [Suspect]
     Active Substance: RITUXIMAB
     Route: 058
  634. RITUXAN [Suspect]
     Active Substance: RITUXIMAB
     Route: 050
  635. RITUXAN [Suspect]
     Active Substance: RITUXIMAB
     Route: 042
  636. RITUXAN [Suspect]
     Active Substance: RITUXIMAB
     Route: 050
  637. RITUXAN [Suspect]
     Active Substance: RITUXIMAB
     Route: 042
  638. RITUXAN [Suspect]
     Active Substance: RITUXIMAB
     Dosage: 1 G, Q12H
  639. RITUXAN [Suspect]
     Active Substance: RITUXIMAB
     Dosage: 2000 MG, QD (NOT OTHERWISE SPECIFIED)
     Route: 042
  640. RITUXAN [Suspect]
     Active Substance: RITUXIMAB
     Dosage: 2 G, Q24H (NOT OTHERWISE SPECIFIED)
     Route: 050
  641. RITUXAN [Suspect]
     Active Substance: RITUXIMAB
     Route: 058
  642. RITUXAN [Suspect]
     Active Substance: RITUXIMAB
  643. RITUXAN [Suspect]
     Active Substance: RITUXIMAB
     Dosage: 1000 MG, BID (NOT OTHERWISE SPECIFIED)
     Route: 042
  644. RITUXAN [Suspect]
     Active Substance: RITUXIMAB
     Route: 042
  645. RITUXAN [Suspect]
     Active Substance: RITUXIMAB
     Dosage: 1 G, BID (NOT OTHERWISE SPECIFIED)
     Route: 042
  646. RITUXAN [Suspect]
     Active Substance: RITUXIMAB
     Dosage: 2000 MG, QD (NOT OTHERWISE SPECIFIED)
     Route: 042
  647. RITUXAN [Suspect]
     Active Substance: RITUXIMAB
     Dosage: 1000 MG, BID
  648. RITUXAN [Suspect]
     Active Substance: RITUXIMAB
     Dosage: 2000 MG, QD (NOT OTHERWISE SPECIFIED)
     Route: 050
  649. RITUXAN [Suspect]
     Active Substance: RITUXIMAB
  650. SULFAMETHOXAZOLE AND TRIMETHOPRIM [Suspect]
     Active Substance: SULFAMETHOXAZOLE\TRIMETHOPRIM
     Indication: Rheumatoid arthritis
     Route: 048
  651. SULFAMETHOXAZOLE AND TRIMETHOPRIM [Suspect]
     Active Substance: SULFAMETHOXAZOLE\TRIMETHOPRIM
     Dosage: 10 MG, QD
     Route: 048
  652. PERIOGARD [Suspect]
     Active Substance: CHLORHEXIDINE GLUCONATE
     Indication: Product used for unknown indication
  653. CHLORHEXIDINE GLUCONATE [Suspect]
     Active Substance: CHLORHEXIDINE GLUCONATE
     Indication: Product used for unknown indication
  654. CHLORHEXIDINE GLUCONATE [Suspect]
     Active Substance: CHLORHEXIDINE GLUCONATE
  655. CORTISONE [Suspect]
     Active Substance: CORTISONE
     Indication: Product used for unknown indication
     Route: 048
  656. CORTISONE [Suspect]
     Active Substance: CORTISONE
     Indication: Rheumatoid arthritis
  657. ERENUMAB-AOOE [Suspect]
     Active Substance: ERENUMAB-AOOE
     Indication: Migraine
  658. KEVZARA [Suspect]
     Active Substance: SARILUMAB
     Indication: Rheumatoid arthritis
  659. KEVZARA [Suspect]
     Active Substance: SARILUMAB
  660. HYDROCORTISONE [Suspect]
     Active Substance: HYDROCORTISONE
     Indication: Rheumatoid arthritis
  661. HYDROCORTISONE [Suspect]
     Active Substance: HYDROCORTISONE
  662. HYDROCORTISONE [Suspect]
     Active Substance: HYDROCORTISONE
  663. FOLIC ACID [Suspect]
     Active Substance: FOLIC ACID
     Indication: Product used for unknown indication
     Route: 048
  664. FOLIC ACID [Suspect]
     Active Substance: FOLIC ACID
     Route: 058
  665. FOLIC ACID [Suspect]
     Active Substance: FOLIC ACID
     Route: 048
  666. FOLIC ACID [Suspect]
     Active Substance: FOLIC ACID
  667. FOLIC ACID [Suspect]
     Active Substance: FOLIC ACID
     Route: 048
  668. FOLIC ACID [Suspect]
     Active Substance: FOLIC ACID
  669. FOLIC ACID [Suspect]
     Active Substance: FOLIC ACID
     Route: 048
  670. FOLIC ACID [Suspect]
     Active Substance: FOLIC ACID
  671. FOLIC ACID [Suspect]
     Active Substance: FOLIC ACID
  672. FOLIC ACID [Suspect]
     Active Substance: FOLIC ACID
  673. FOLIC ACID [Suspect]
     Active Substance: FOLIC ACID
  674. ALENDRONATE SODIUM [Suspect]
     Active Substance: ALENDRONATE SODIUM
     Indication: Rheumatoid arthritis
     Route: 048
  675. ALENDRONATE SODIUM [Suspect]
     Active Substance: ALENDRONATE SODIUM
     Indication: Product used for unknown indication
     Route: 048
  676. ALENDRONATE SODIUM [Suspect]
     Active Substance: ALENDRONATE SODIUM
     Route: 048
  677. ALENDRONATE SODIUM [Suspect]
     Active Substance: ALENDRONATE SODIUM
     Route: 048
  678. ALENDRONATE SODIUM [Suspect]
     Active Substance: ALENDRONATE SODIUM
     Route: 048
  679. ALENDRONATE SODIUM [Suspect]
     Active Substance: ALENDRONATE SODIUM
     Route: 048
  680. ALENDRONATE SODIUM [Suspect]
     Active Substance: ALENDRONATE SODIUM
  681. ALENDRONATE SODIUM [Suspect]
     Active Substance: ALENDRONATE SODIUM
     Route: 048
  682. ALENDRONATE SODIUM [Suspect]
     Active Substance: ALENDRONATE SODIUM
  683. ALENDRONATE SODIUM [Suspect]
     Active Substance: ALENDRONATE SODIUM
  684. ALENDRONATE SODIUM [Suspect]
     Active Substance: ALENDRONATE SODIUM
     Route: 048
  685. ALENDRONATE SODIUM [Suspect]
     Active Substance: ALENDRONATE SODIUM
     Route: 048
  686. ALENDRONATE SODIUM [Suspect]
     Active Substance: ALENDRONATE SODIUM
     Route: 048
  687. PREDNISONE [Suspect]
     Active Substance: PREDNISONE
     Indication: Inflammation
     Route: 048
  688. PREDNISONE [Suspect]
     Active Substance: PREDNISONE
     Indication: Rheumatoid arthritis
     Dosage: 1 DOSAGE FORM, QD
  689. PREDNISONE [Suspect]
     Active Substance: PREDNISONE
     Dosage: 1 DOSAGE FORM, QD
  690. PREDNISONE [Suspect]
     Active Substance: PREDNISONE
  691. PREDNISONE [Suspect]
     Active Substance: PREDNISONE
  692. PREDNISONE [Suspect]
     Active Substance: PREDNISONE
  693. PREDNISONE [Suspect]
     Active Substance: PREDNISONE
     Dosage: 20 MG, QD
  694. PREDNISONE [Suspect]
     Active Substance: PREDNISONE
  695. PREDNISONE [Suspect]
     Active Substance: PREDNISONE
  696. PREDNISONE [Suspect]
     Active Substance: PREDNISONE
  697. PREDNISONE [Suspect]
     Active Substance: PREDNISONE
     Route: 048
  698. PREDNISONE [Suspect]
     Active Substance: PREDNISONE
     Dosage: UNK, QD
     Route: 048
  699. PREDNISONE [Suspect]
     Active Substance: PREDNISONE
  700. PREDNISONE [Suspect]
     Active Substance: PREDNISONE
  701. DICLOFENAC SODIUM [Suspect]
     Active Substance: DICLOFENAC SODIUM
     Indication: Rheumatoid arthritis
  702. DICLOFENAC SODIUM [Suspect]
     Active Substance: DICLOFENAC SODIUM
  703. AZATHIOPRINE SODIUM [Suspect]
     Active Substance: AZATHIOPRINE SODIUM
     Indication: Product used for unknown indication
  704. AZATHIOPRINE SODIUM [Suspect]
     Active Substance: AZATHIOPRINE SODIUM
  705. CELEBREX [Suspect]
     Active Substance: CELECOXIB
     Indication: Product used for unknown indication
     Route: 048
  706. CELEBREX [Suspect]
     Active Substance: CELECOXIB
     Route: 048
  707. CELEBREX [Suspect]
     Active Substance: CELECOXIB
     Route: 048
  708. CELEBREX [Suspect]
     Active Substance: CELECOXIB
     Route: 048
  709. BOTULINUM TOXIN NOS [Suspect]
     Active Substance: BOTULINUM TOXIN NOS
     Indication: Product used for unknown indication
  710. RIBOFLAVIN [Suspect]
     Active Substance: RIBOFLAVIN
     Indication: Product used for unknown indication
  711. VOLTAREN [Suspect]
     Active Substance: DICLOFENAC SODIUM
     Indication: Product used for unknown indication
  712. ACETAMINOPHEN [Suspect]
     Active Substance: ACETAMINOPHEN
     Indication: Arthralgia
  713. ACETAMINOPHEN [Suspect]
     Active Substance: ACETAMINOPHEN
     Indication: Rheumatoid arthritis
  714. ACETAMINOPHEN [Suspect]
     Active Substance: ACETAMINOPHEN
  715. ACETAMINOPHEN [Suspect]
     Active Substance: ACETAMINOPHEN
     Route: 058
  716. ACETAMINOPHEN [Suspect]
     Active Substance: ACETAMINOPHEN
  717. APREMILAST [Suspect]
     Active Substance: APREMILAST
     Indication: Product used for unknown indication
  718. APREMILAST [Suspect]
     Active Substance: APREMILAST
  719. APREMILAST [Suspect]
     Active Substance: APREMILAST
  720. HYDROCORTISONE BUTYRATE [Suspect]
     Active Substance: HYDROCORTISONE BUTYRATE
     Indication: Rheumatoid arthritis
  721. NAPROXEN SODIUM [Suspect]
     Active Substance: NAPROXEN SODIUM
     Indication: Rheumatoid arthritis
  722. NAPROXEN SODIUM [Suspect]
     Active Substance: NAPROXEN SODIUM
  723. NAPROXEN SODIUM [Suspect]
     Active Substance: NAPROXEN SODIUM
  724. HYDROCORTISONE PROBUTATE [Suspect]
     Active Substance: HYDROCORTISONE PROBUTATE
     Indication: Product used for unknown indication
  725. METHYLPREDNISOLONE SODIUM SUCCINATE [Suspect]
     Active Substance: METHYLPREDNISOLONE SODIUM SUCCINATE
     Indication: Product used for unknown indication
  726. METHYLPREDNISOLONE SODIUM SUCCINATE [Suspect]
     Active Substance: METHYLPREDNISOLONE SODIUM SUCCINATE
  727. HYDROCORTISONE [Suspect]
     Active Substance: HYDROCORTISONE
     Indication: Rheumatoid arthritis
     Route: 048
  728. HYDROCORTISONE [Suspect]
     Active Substance: HYDROCORTISONE
  729. OXYCODONE [Suspect]
     Active Substance: OXYCODONE
     Indication: Product used for unknown indication

REACTIONS (101)
  - Psoriatic arthropathy [Fatal]
  - Helicobacter infection [Fatal]
  - Injection site reaction [Fatal]
  - Fibromyalgia [Fatal]
  - Pain in extremity [Fatal]
  - Dyspepsia [Fatal]
  - Injury [Fatal]
  - Lip dry [Fatal]
  - Onychomadesis [Fatal]
  - Depression [Fatal]
  - Malaise [Fatal]
  - Abdominal distension [Fatal]
  - Liver function test increased [Fatal]
  - Abdominal pain upper [Fatal]
  - Alopecia [Fatal]
  - Peripheral swelling [Fatal]
  - Asthenia [Fatal]
  - Osteoarthritis [Fatal]
  - Mobility decreased [Fatal]
  - Pneumonia [Fatal]
  - Glossodynia [Fatal]
  - Facet joint syndrome [Fatal]
  - Drug-induced liver injury [Fatal]
  - Neck pain [Fatal]
  - Nausea [Fatal]
  - Hypoaesthesia [Fatal]
  - Rheumatoid arthritis [Fatal]
  - Nasopharyngitis [Fatal]
  - Systemic lupus erythematosus [Fatal]
  - Stomatitis [Fatal]
  - Irritable bowel syndrome [Fatal]
  - Hepatic enzyme increased [Fatal]
  - Arthralgia [Fatal]
  - Breast cancer stage III [Fatal]
  - Rash [Fatal]
  - Maternal exposure during pregnancy [Fatal]
  - Pericarditis [Fatal]
  - Live birth [Fatal]
  - C-reactive protein abnormal [Fatal]
  - Coeliac disease [Fatal]
  - Hypertension [Fatal]
  - Hand deformity [Fatal]
  - Sleep disorder [Fatal]
  - C-reactive protein increased [Fatal]
  - Hepatitis [Fatal]
  - Nail disorder [Fatal]
  - Inflammation [Fatal]
  - Obesity [Fatal]
  - Confusional state [Fatal]
  - Memory impairment [Fatal]
  - Joint range of motion decreased [Fatal]
  - General physical health deterioration [Fatal]
  - Gait inability [Fatal]
  - Rheumatic fever [Fatal]
  - Musculoskeletal stiffness [Fatal]
  - Abdominal discomfort [Fatal]
  - Blood cholesterol increased [Fatal]
  - Lower respiratory tract infection [Fatal]
  - Blister [Fatal]
  - Liver injury [Fatal]
  - Duodenal ulcer perforation [Fatal]
  - Dizziness [Fatal]
  - Bursitis [Fatal]
  - Epilepsy [Fatal]
  - Headache [Fatal]
  - Back injury [Fatal]
  - Condition aggravated [Fatal]
  - Fatigue [Fatal]
  - Gastrooesophageal reflux disease [Fatal]
  - Gastrointestinal disorder [Fatal]
  - Swelling [Fatal]
  - Arthropathy [Fatal]
  - Pemphigus [Fatal]
  - Pain [Fatal]
  - Dry mouth [Fatal]
  - Fall [Fatal]
  - Joint swelling [Fatal]
  - Folliculitis [Fatal]
  - Onychomycosis [Fatal]
  - Insomnia [Fatal]
  - Lung disorder [Fatal]
  - Finger deformity [Fatal]
  - Paraesthesia [Fatal]
  - Migraine [Fatal]
  - Diarrhoea [Fatal]
  - Grip strength decreased [Fatal]
  - Drug hypersensitivity [Fatal]
  - Normal newborn [Fatal]
  - Impaired healing [Fatal]
  - Hypersensitivity [Fatal]
  - Infusion related reaction [Fatal]
  - Muscle spasms [Fatal]
  - Blepharospasm [Fatal]
  - Night sweats [Fatal]
  - Hypercholesterolaemia [Fatal]
  - Anti-cyclic citrullinated peptide antibody positive [Fatal]
  - Synovitis [Fatal]
  - Muscular weakness [Fatal]
  - Muscle injury [Fatal]
  - Musculoskeletal pain [Fatal]
  - Drug intolerance [Fatal]
